FAERS Safety Report 7729372-7 (Version None)
Quarter: 2011Q3

REPORT INFORMATION
  Report Type: 
  Country: None (occurrence: None)
  Receive Date: 20110906
  Receipt Date: 20110825
  Transmission Date: 20111222
  Serious: Yes (Other)
  Sender: FDA-Public Use
  Company Number: DE-UCBSA-036233

PATIENT
  Sex: Male
  Weight: 90 kg

DRUGS (4)
  1. KEPPRA [Suspect]
     Dosage: UP TITRATED
     Dates: start: 20110101, end: 20110101
  2. KEPPRA [Suspect]
     Dosage: UCB GENERIC LEVETIRACETAM -750MG
  3. CARBAMAZEPIN HEXAL [Concomitant]
  4. KEPPRA [Suspect]
     Dosage: 250 MG

REACTIONS (3)
  - HYPERHIDROSIS [None]
  - CONVULSION [None]
  - ECZEMA [None]
